FAERS Safety Report 6737039-7 (Version None)
Quarter: 2010Q2

REPORT INFORMATION
  Report Type: 
  Country: None (occurrence: None)
  Receive Date: 20100524
  Receipt Date: 20100517
  Transmission Date: 20101027
  Serious: Yes (Death, Disabling)
  Sender: FDA-Public Use
  Company Number: US-ASTRAZENECA-2007UW08198

PATIENT
  Sex: Female

DRUGS (4)
  1. SEROQUEL [Suspect]
     Dosage: 200 MG
     Route: 048
     Dates: start: 20040116
  2. TRILEPTAL [Concomitant]
     Dates: start: 20040116
  3. RISPERDAL [Concomitant]
     Dates: start: 20040116
  4. ZOLOFT [Concomitant]
     Dates: start: 20040116

REACTIONS (2)
  - DEATH [None]
  - DIABETES MELLITUS [None]
